FAERS Safety Report 21617624 (Version 3)
Quarter: 2023Q1

REPORT INFORMATION
  Report Type: Report from Study
  Country: US (occurrence: US)
  Receive Date: 20221119
  Receipt Date: 20230111
  Transmission Date: 20230417
  Serious: Yes (Hospitalization, Other)
  Sender: FDA-Public Use
  Company Number: US-ABBVIE-4206138

PATIENT
  Age: 65 Year
  Sex: Male

DRUGS (1)
  1. HUMIRA [Suspect]
     Active Substance: ADALIMUMAB
     Indication: Rheumatoid arthritis
     Route: 058
     Dates: start: 20211005

REACTIONS (6)
  - Lumbar spinal stenosis [Recovering/Resolving]
  - Intervertebral disc degeneration [Recovering/Resolving]
  - Hypoaesthesia [Recovering/Resolving]
  - Facet joint syndrome [Recovering/Resolving]
  - Back pain [Recovered/Resolved]
  - Scoliosis [Recovering/Resolving]

NARRATIVE: CASE EVENT DATE: 20220513
